FAERS Safety Report 7589085-1 (Version None)
Quarter: 2011Q3

REPORT INFORMATION
  Report Type: 
  Country: None (occurrence: None)
  Receive Date: 20110705
  Receipt Date: 20110623
  Transmission Date: 20111222
  Serious: Yes (Other)
  Sender: FDA-Public Use
  Company Number: BE-JNJFOC-20110610952

PATIENT
  Age: 14 Year
  Sex: Female

DRUGS (4)
  1. DIPROPHOS [Concomitant]
  2. ANTISPASMODICS/ ANTICHOLINERGICS [Concomitant]
  3. LEVOFLOXACIN [Suspect]
     Indication: DIARRHOEA
     Route: 042
  4. SCOPOLAMINE [Concomitant]

REACTIONS (7)
  - PARAESTHESIA [None]
  - PYREXIA [None]
  - MICTURITION DISORDER [None]
  - DYSPHAGIA [None]
  - MUSCLE ATROPHY [None]
  - DIPLEGIA [None]
  - FATIGUE [None]
